FAERS Safety Report 6888248-8 (Version None)
Quarter: 2010Q3

REPORT INFORMATION
  Report Type: 
  Country: None (occurrence: None)
  Receive Date: 20100730
  Receipt Date: 20100728
  Transmission Date: 20110219
  Serious: Yes (Hospitalization)
  Sender: FDA-Public Use
  Company Number: GXKR2010DE08389

PATIENT
  Age: 62 Year
  Sex: Male

DRUGS (1)
  1. SIMVASTATIN 1A PHARMA (NGX) [Suspect]
     Dosage: 80 MG, UNK
     Route: 048

REACTIONS (1)
  - ANGINA PECTORIS [None]
